FAERS Safety Report 17562678 (Version 1)
Quarter: 2020Q1

REPORT INFORMATION
  Report Type: Report from Study
  Country: None (occurrence: US)
  Receive Date: 20200319
  Receipt Date: 20200319
  Transmission Date: 20200409
  Serious: Yes (Death, Hospitalization, Other)
  Sender: FDA-Public Use
  Company Number: US-ABBVIE-20K-163-3327278-00

PATIENT
  Age: 72 Year
  Sex: Male
  Weight: 77.18 kg

DRUGS (20)
  1. LOSARTAN. [Concomitant]
     Active Substance: LOSARTAN
     Indication: BLOOD PRESSURE MEASUREMENT
  2. DIFICID [Concomitant]
     Active Substance: FIDAXOMICIN
     Indication: PRODUCT USED FOR UNKNOWN INDICATION
     Dosage: PTUTV
     Route: 048
  3. TYLENOL [Concomitant]
     Active Substance: ACETAMINOPHEN
     Indication: PRODUCT USED FOR UNKNOWN INDICATION
     Route: 048
  4. VIDAZA [Suspect]
     Active Substance: AZACITIDINE
     Indication: CHRONIC MYELOMONOCYTIC LEUKAEMIA
     Dosage: MONTHLY DOSING
     Route: 042
     Dates: start: 2015
  5. ZYRTEC [Concomitant]
     Active Substance: CETIRIZINE HYDROCHLORIDE
     Indication: PRODUCT USED FOR UNKNOWN INDICATION
     Dosage: PRN
     Route: 048
  6. TRAMADOL. [Concomitant]
     Active Substance: TRAMADOL
     Indication: PRODUCT USED FOR UNKNOWN INDICATION
     Route: 048
  7. ALLOPURINOL. [Concomitant]
     Active Substance: ALLOPURINOL
     Indication: PRODUCT USED FOR UNKNOWN INDICATION
     Route: 048
  8. VITAMIN D2 [Concomitant]
     Active Substance: ERGOCALCIFEROL
     Indication: PRODUCT USED FOR UNKNOWN INDICATION
     Dosage: 200UNIT QW
     Route: 048
  9. CINNAMON. [Concomitant]
     Active Substance: CINNAMON
     Indication: PRODUCT USED FOR UNKNOWN INDICATION
     Route: 048
  10. CARBIDOPA LEVODOPA [Concomitant]
     Active Substance: CARBIDOPA\LEVODOPA
     Indication: PARKINSON^S DISEASE
     Route: 065
     Dates: start: 202002, end: 202003
  11. LOSARTAN AND HYDROCHLOROTHIAZIDE [Concomitant]
     Active Substance: HYDROCHLOROTHIAZIDE\LOSARTAN POTASSIUM
     Indication: PRODUCT USED FOR UNKNOWN INDICATION
     Dosage: 100/25NG
     Route: 048
  12. PREVACID [Concomitant]
     Active Substance: LANSOPRAZOLE
     Indication: PRODUCT USED FOR UNKNOWN INDICATION
     Route: 048
  13. ADVIL [Concomitant]
     Active Substance: IBUPROFEN
     Indication: PRODUCT USED FOR UNKNOWN INDICATION
     Route: 048
  14. POTASSIUM CHLORIDE. [Concomitant]
     Active Substance: POTASSIUM CHLORIDE
     Indication: PRODUCT USED FOR UNKNOWN INDICATION
     Route: 048
  15. PRAMIPEXOLE DIHYDROCHLORIDE. [Concomitant]
     Active Substance: PRAMIPEXOLE DIHYDROCHLORIDE
     Indication: PRODUCT USED FOR UNKNOWN INDICATION
     Route: 048
  16. DUOPA [Suspect]
     Active Substance: CARBIDOPA\LEVODOPA
     Indication: PRODUCT USED FOR UNKNOWN INDICATION
     Route: 050
     Dates: start: 20190607, end: 202002
  17. VITAMIN D [Concomitant]
     Active Substance: VITAMIN D NOS
     Indication: VITAMIN SUPPLEMENTATION
  18. CARBIDOPA, LEVODOPA AND ENTACAPONE [Concomitant]
     Active Substance: CARBIDOPA\ENTACAPONE\LEVODOPA
     Indication: PRODUCT USED FOR UNKNOWN INDICATION
     Dosage: 0.5 PRN
     Route: 048
  19. PRILOSEC [Concomitant]
     Active Substance: OMEPRAZOLE MAGNESIUM
     Indication: DYSPEPSIA
  20. FUROSEMIDE. [Concomitant]
     Active Substance: FUROSEMIDE
     Indication: PRODUCT USED FOR UNKNOWN INDICATION
     Route: 048

REACTIONS (7)
  - Clostridium difficile infection [Not Recovered/Not Resolved]
  - Chronic myelomonocytic leukaemia [Fatal]
  - Fall [Recovered/Resolved]
  - Upper limb fracture [Recovered/Resolved]
  - Blood potassium decreased [Recovered/Resolved]
  - Product use complaint [Not Recovered/Not Resolved]
  - Seizure [Fatal]

NARRATIVE: CASE EVENT DATE: 2019
